FAERS Safety Report 5162765-3 (Version None)
Quarter: 2006Q4

REPORT INFORMATION
  Report Type: 
  Country: None (occurrence: None)
  Receive Date: 20061121
  Receipt Date: 20061114
  Transmission Date: 20070319
  Serious: Yes (Other)
  Sender: FDA-Public Use
  Company Number: US-2006-035501

PATIENT
  Age: 24 Year
  Sex: Female
  Weight: 104 kg

DRUGS (1)
  1. MIRENA [Suspect]
     Indication: CONTRACEPTION
     Dosage: 20 UG/DAY, CONT, INTRA-UTERINE
     Route: 015
     Dates: start: 20021201, end: 20040601

REACTIONS (4)
  - AMENORRHOEA [None]
  - ANOVULATORY CYCLE [None]
  - INFERTILITY FEMALE [None]
  - MENOMETRORRHAGIA [None]
